FAERS Safety Report 7769146-4 (Version None)
Quarter: 2011Q3

REPORT INFORMATION
  Report Type: 
  Country: None (occurrence: None)
  Receive Date: 20110922
  Receipt Date: 20110428
  Transmission Date: 20111222
  Serious: No
  Sender: FDA-Public Use
  Company Number: US-ASTRAZENECA-2011SE19076

PATIENT
  Age: 23 Year
  Sex: Male
  Weight: 77.1 kg

DRUGS (7)
  1. SEROQUEL XR [Suspect]
     Indication: BIPOLAR I DISORDER
     Route: 048
  2. CLONIDINE [Concomitant]
     Indication: ANXIETY
     Route: 048
     Dates: start: 20110205
  3. SEROQUEL XR [Suspect]
     Route: 048
     Dates: start: 20110205, end: 20110403
  4. SEROQUEL XR [Suspect]
     Route: 048
     Dates: start: 20110205, end: 20110403
  5. SEROQUEL XR [Suspect]
     Route: 048
     Dates: start: 20110205, end: 20110403
  6. SEROQUEL XR [Suspect]
     Indication: DEPRESSION
     Route: 048
  7. SEROQUEL XR [Suspect]
     Indication: ANXIETY
     Route: 048

REACTIONS (7)
  - ANXIETY [None]
  - MOOD SWINGS [None]
  - DEPRESSION [None]
  - DISSOCIATIVE AMNESIA [None]
  - AGITATION [None]
  - LOGORRHOEA [None]
  - DRUG DOSE OMISSION [None]
